FAERS Safety Report 13987525 (Version 1)
Quarter: 2017Q3

REPORT INFORMATION
  Report Type: Spontaneous
  Country: IT (occurrence: IT)
  Receive Date: 20170919
  Receipt Date: 20170919
  Transmission Date: 20171128
  Serious: Yes (Death, Hospitalization)
  Sender: FDA-Public Use
  Company Number: IT-MYLANLABS-2017M1057808

PATIENT
  Age: 82 Year
  Sex: Female

DRUGS (1)
  1. SELEGILINE [Suspect]
     Active Substance: SELEGILINE
     Indication: DEPRESSION
     Route: 065

REACTIONS (2)
  - Heat stroke [Fatal]
  - Multiple organ dysfunction syndrome [Fatal]
